FAERS Safety Report 14591550 (Version 1)
Quarter: 2018Q1

REPORT INFORMATION
  Report Type: Spontaneous
  Country: US (occurrence: US)
  Receive Date: 20180302
  Receipt Date: 20180302
  Transmission Date: 20180509
  Serious: Yes (Other)
  Sender: FDA-Public Use
  Company Number: US-BAXTER-2018BAX006466

PATIENT
  Sex: Female

DRUGS (1)
  1. CIPROFLOXACIN INJECTION, USP [Suspect]
     Active Substance: CIPROFLOXACIN
     Indication: PRODUCT USED FOR UNKNOWN INDICATION
     Route: 065

REACTIONS (9)
  - Urinary tract infection [Unknown]
  - Hepatic failure [Unknown]
  - Nausea [Unknown]
  - Leukocytosis [Unknown]
  - Fatigue [Unknown]
  - Vomiting [Unknown]
  - Renal impairment [Unknown]
  - Splenomegaly [Unknown]
  - Sinusitis [Unknown]
